FAERS Safety Report 21361888 (Version 3)
Quarter: 2023Q2

REPORT INFORMATION
  Report Type: Spontaneous
  Country: CA (occurrence: CA)
  Receive Date: 20220922
  Receipt Date: 20230427
  Transmission Date: 20230722
  Serious: Yes (Hospitalization)
  Sender: FDA-Public Use
  Company Number: CA-AUROBINDO-AUR-APL-2022-037540

PATIENT
  Age: 44 Year
  Sex: Male

DRUGS (14)
  1. CITALOPRAM [Interacting]
     Active Substance: CITALOPRAM HYDROBROMIDE
     Indication: Depression
     Dosage: UNK
     Route: 065
  2. CITALOPRAM [Interacting]
     Active Substance: CITALOPRAM HYDROBROMIDE
     Indication: Psychotic disorder
  3. QUETIAPINE [Interacting]
     Active Substance: QUETIAPINE
     Indication: Depression
     Dosage: UNK
     Route: 048
  4. BUPROPION [Interacting]
     Active Substance: BUPROPION
     Indication: Depression
     Dosage: UNK
     Route: 065
  5. BUPROPION [Interacting]
     Active Substance: BUPROPION
     Indication: Depression
     Dosage: UNK
     Route: 065
  6. CLONAZEPAM [Interacting]
     Active Substance: CLONAZEPAM
     Indication: Psychotic disorder
     Dosage: UNK
     Route: 065
  7. CLONAZEPAM [Interacting]
     Active Substance: CLONAZEPAM
     Indication: Depression
  8. CLONAZEPAM [Interacting]
     Active Substance: CLONAZEPAM
     Indication: Psychotic disorder
     Dosage: UNK
     Route: 065
  9. CLONAZEPAM [Interacting]
     Active Substance: CLONAZEPAM
     Indication: Depression
  10. RALTEGRAVIR POTASSIUM [Interacting]
     Active Substance: RALTEGRAVIR POTASSIUM
     Indication: HIV infection
     Dosage: 400 MILLIGRAM, TWO TIMES A DAY
     Route: 065
  11. RISPERIDONE [Interacting]
     Active Substance: RISPERIDONE
     Indication: Depression
     Dosage: UNK
     Route: 065
  12. TENOFOVIR [Concomitant]
     Active Substance: TENOFOVIR
     Indication: HIV infection
     Dosage: UNK
     Route: 065
  13. ATAZANAVIR\RITONAVIR [Concomitant]
     Active Substance: ATAZANAVIR\RITONAVIR
     Indication: HIV infection
     Dosage: UNK
     Route: 065
  14. EMTRICITABINE [Concomitant]
     Active Substance: EMTRICITABINE
     Indication: HIV infection
     Dosage: UNK
     Route: 065

REACTIONS (2)
  - Psychiatric decompensation [Unknown]
  - Drug interaction [Unknown]
